FAERS Safety Report 4835658-6 (Version None)
Quarter: 2005Q4

REPORT INFORMATION
  Report Type: 
  Country: None (occurrence: None)
  Receive Date: 20051123
  Receipt Date: 20051104
  Transmission Date: 20060501
  Serious: No
  Sender: FDA-Public Use
  Company Number: 2005UW16784

PATIENT
  Age: 17 Year
  Sex: Female
  Weight: 78 kg

DRUGS (4)
  1. SEROQUEL [Suspect]
     Indication: SCHIZOPHRENIA
     Route: 048
     Dates: end: 20051004
  2. DEPAKOTE [Concomitant]
  3. BENZOTROPINE [Concomitant]
  4. REMERON [Concomitant]

REACTIONS (2)
  - AGRANULOCYTOSIS [None]
  - WHITE BLOOD CELL COUNT DECREASED [None]
